FAERS Safety Report 8103234-8 (Version None)
Quarter: 2012Q1

REPORT INFORMATION
  Report Type: 
  Country: None (occurrence: None)
  Receive Date: 20120127
  Receipt Date: 20120116
  Transmission Date: 20120608
  Serious: Yes (Other)
  Sender: FDA-Public Use
  Company Number: 2012P1002991

PATIENT

DRUGS (1)
  1. AMPICILLIN [Suspect]

REACTIONS (3)
  - TOXIC EPIDERMAL NECROLYSIS [None]
  - DRUG HYPERSENSITIVITY [None]
  - STEVENS-JOHNSON SYNDROME [None]
